FAERS Safety Report 22754291 (Version 4)
Quarter: 2024Q2

REPORT INFORMATION
  Report Type: Spontaneous
  Country: NL (occurrence: NL)
  Receive Date: 20230727
  Receipt Date: 20240511
  Transmission Date: 20240715
  Serious: No
  Sender: FDA-Public Use
  Company Number: None

PATIENT
  Age: 40 Year
  Sex: Female
  Weight: 56 kg

DRUGS (5)
  1. FREMANEZUMAB [Suspect]
     Active Substance: FREMANEZUMAB
     Indication: Migraine
     Dosage: DOSAGE TEXT: 1X PER MONTH,  FREMANEZUMAB INJVLST 150MG/ML / AJOVY INJVLST 150MG/ML PEN 1,5ML
     Route: 065
     Dates: start: 20230605
  2. IBUPROFEN CAPSULE ZACHT 400MG / ADVIL RELIVA FORTE LIQUID CAPSULE 4... [Concomitant]
     Dosage: CAPSULE, 400 MG (MILLIGRAM)
  3. IBUPROFEN [Concomitant]
     Active Substance: IBUPROFEN
     Indication: Product used for unknown indication
     Dosage: DOSAGE TEXT: 400 MG (MILLIGRAM), IBUPROFEN SOFT CAPSULE 400MG / ADVIL RELIVA FORTE LIQUID CAPSULE...
     Route: 065
  4. RIZATRIPTAN SMELTTABLET 10MG / MAXALT SMELTTABLET 10MG [Concomitant]
     Indication: Product used for unknown indication
     Dosage: SMELTTABLET, 10 MG (MILLIGRAM)
     Route: 065
  5. MAXALT [Concomitant]
     Active Substance: RIZATRIPTAN BENZOATE
     Indication: Product used for unknown indication
     Dosage: DOSAGE TEXT: 10 MG (MILLIGRAM)
     Route: 065

REACTIONS (2)
  - Fatigue [Recovered/Resolved]
  - Sleep attacks [Recovered/Resolved]
